FAERS Safety Report 20375385 (Version 1)
Quarter: 2022Q1

REPORT INFORMATION
  Report Type: Spontaneous
  Country: ES (occurrence: ES)
  Receive Date: 20220125
  Receipt Date: 20220125
  Transmission Date: 20220424
  Serious: Yes (Hospitalization)
  Sender: FDA-Public Use
  Company Number: None

PATIENT
  Age: 70 Year
  Sex: Female

DRUGS (6)
  1. LAMOTRIGINE [Suspect]
     Active Substance: LAMOTRIGINE
     Dosage: LAMOTRIGINE (2579A)
     Route: 065
     Dates: start: 20081013, end: 2020
  2. QUETIAPINE [Suspect]
     Active Substance: QUETIAPINE
     Dosage: QUETIAPINA (1136A)
     Route: 065
     Dates: start: 20100528
  3. SERTRALINE [Suspect]
     Active Substance: SERTRALINE HYDROCHLORIDE
     Dosage: SERTRALINE (2537A)
     Dates: start: 20200722, end: 2020
  4. LITHIUM [Suspect]
     Active Substance: LITHIUM
     Route: 065
     Dates: start: 20200609
  5. LORAZEPAM [Suspect]
     Active Substance: LORAZEPAM
     Dosage: LORAZEPAM (1864A)
     Route: 065
     Dates: start: 20190618, end: 2020
  6. FLURAZEPAM [Suspect]
     Active Substance: FLURAZEPAM HYDROCHLORIDE
     Dosage: FLURAZEPAM (1577A)
     Route: 065
     Dates: start: 20190202

REACTIONS (1)
  - Confusional state [Unknown]

NARRATIVE: CASE EVENT DATE: 20201011
